FAERS Safety Report 9129912 (Version 1)
Quarter: 2013Q1

REPORT INFORMATION
  Report Type: Spontaneous
  Country: FR (occurrence: FR)
  Receive Date: 20130122
  Receipt Date: 20130122
  Transmission Date: 20140127
  Serious: Yes (Life-Threatening, Hospitalization, Disabling)
  Sender: FDA-Public Use
  Company Number: FR-JNJFOC-20130110515

PATIENT
  Age: 65 Year
  Sex: Male

DRUGS (5)
  1. ACETAMINOPHEN\DIPHENHYDRAMINE\PSEUDOEPHEDRINE [Suspect]
     Indication: NASOPHARYNGITIS
     Route: 048
     Dates: start: 20121202, end: 20121202
  2. ACETAMINOPHEN\DIPHENHYDRAMINE\PSEUDOEPHEDRINE [Suspect]
     Indication: NASOPHARYNGITIS
     Route: 048
     Dates: start: 20121202, end: 20121202
  3. AMLOR [Concomitant]
     Route: 048
  4. IRBESARTAN/HYDROCHLOROTHIAZIDE [Concomitant]
     Indication: HYPERTENSION
     Route: 048
  5. TENORMINE [Concomitant]
     Indication: HYPERTENSION
     Route: 048

REACTIONS (3)
  - Haemorrhagic stroke [Recovered/Resolved with Sequelae]
  - Thrombotic cerebral infarction [None]
  - Epilepsy [None]
